FAERS Safety Report 12751388 (Version 1)
Quarter: 2016Q3

REPORT INFORMATION
  Report Type: Spontaneous
  Country: US (occurrence: US)
  Receive Date: 20160916
  Receipt Date: 20160916
  Transmission Date: 20161109
  Serious: No
  Sender: FDA-Public Use
  Company Number: None

PATIENT
  Age: 65 Year
  Sex: Female
  Weight: 43.65 kg

DRUGS (5)
  1. LISINOPRIL. [Concomitant]
     Active Substance: LISINOPRIL
  2. TYLENOL [Concomitant]
     Active Substance: ACETAMINOPHEN
  3. METOPROLOL. [Concomitant]
     Active Substance: METOPROLOL
  4. CALCIUM/VITE D [Concomitant]
  5. PROLIA [Suspect]
     Active Substance: DENOSUMAB
     Indication: OSTEOPOROSIS
     Dosage: OTHER STRENGTH:;OTHER DOSE:;OTHER FREQUENCY:ONCE EVERY 6 MOS;OTHER ROUTE:INJECTION IN ABDOMEN
     Dates: start: 20160721

REACTIONS (1)
  - Night sweats [None]

NARRATIVE: CASE EVENT DATE: 20160721
